FAERS Safety Report 9050552 (Version 1)
Quarter: 2013Q1

REPORT INFORMATION
  Report Type: Spontaneous
  Country: US (occurrence: US)
  Receive Date: 20130205
  Receipt Date: 20130205
  Transmission Date: 20140127
  Serious: Yes (Other)
  Sender: FDA-Public Use
  Company Number: US-OTSUKA-02100-USA-00-0218

PATIENT
  Sex: Male

DRUGS (1)
  1. CILOSTAZOL [Suspect]
     Route: 048
     Dates: start: 200004, end: 200005

REACTIONS (1)
  - Angioedema [Recovered/Resolved]
